FAERS Safety Report 4523161-2 (Version None)
Quarter: 2004Q4

REPORT INFORMATION
  Report Type: 
  Country: None (occurrence: None)
  Receive Date: 20041207
  Receipt Date: 20041207
  Transmission Date: 20050328
  Serious: Yes (Life-Threatening, Hospitalization, Other)
  Sender: FDA-Public Use
  Company Number: None

PATIENT
  Age: 62 Year
  Sex: Female
  Weight: 56.246 kg

DRUGS (1)
  1. NICOTINE PATCH (EQUATE) [Suspect]

REACTIONS (1)
  - ASTHMA [None]
